FAERS Safety Report 13914395 (Version 1)
Quarter: 2017Q3

REPORT INFORMATION
  Report Type: Spontaneous
  Country: US (occurrence: US)
  Receive Date: 20170828
  Receipt Date: 20170828
  Transmission Date: 20171127
  Serious: No
  Sender: FDA-Public Use
  Company Number: US-ROCHE-1132618

PATIENT
  Age: 13 Year
  Sex: Female
  Weight: 53.1 kg

DRUGS (10)
  1. PRILOSEC [Concomitant]
     Active Substance: OMEPRAZOLE MAGNESIUM
  2. SLO-BID [Concomitant]
     Active Substance: THEOPHYLLINE ANHYDROUS
     Route: 065
  3. INTAL [Concomitant]
     Active Substance: CROMOLYN SODIUM
     Dosage: TWO PUFFS FOUR TIMES A DAY
     Route: 065
  4. SOLU-CORTEF [Concomitant]
     Active Substance: HYDROCORTISONE SODIUM SUCCINATE
     Dosage: EVERY 6 HOURS, PRN
     Route: 030
  5. NUTROPIN [Suspect]
     Active Substance: SOMATROPIN
     Indication: DWARFISM
     Dosage: 7 INJECTIONS PER WEEK, DILUTE WITH 2.00ML, INJECTION VOLUME: 0.34ML
     Route: 058
     Dates: start: 199906
  6. SINGULAIR [Concomitant]
     Active Substance: MONTELUKAST SODIUM
     Route: 065
  7. CLARITIN [Concomitant]
     Active Substance: LORATADINE
     Route: 065
  8. PREDNISONE. [Concomitant]
     Active Substance: PREDNISONE
     Route: 065
  9. SEREVENT DISKUS [Concomitant]
     Active Substance: SALMETEROL XINAFOATE
     Dosage: DOUBLE STRENGTH ONE PUFF TWICE A DAY
     Route: 065
  10. PULMICORT TURBUHALER [Concomitant]
     Active Substance: BUDESONIDE
     Dosage: 3 PUFFS TWICE A DAY
     Route: 065

REACTIONS (8)
  - Oropharyngeal pain [Unknown]
  - Anaemia [Unknown]
  - Ligament sprain [Unknown]
  - Seborrhoea [Unknown]
  - Dry skin [Unknown]
  - Fatigue [Unknown]
  - Headache [Unknown]
  - Gastroenteritis [Unknown]

NARRATIVE: CASE EVENT DATE: 20011105
